APPROVED DRUG PRODUCT: PEMETREXED DISODIUM
Active Ingredient: PEMETREXED DISODIUM
Strength: EQ 500MG BASE/VIAL
Dosage Form/Route: POWDER;INTRAVENOUS
Application: A214632 | Product #002 | TE Code: AP
Applicant: EUGIA PHARMA SPECIALITIES LTD
Approved: May 25, 2022 | RLD: No | RS: No | Type: RX